FAERS Safety Report 17251978 (Version 1)
Quarter: 2020Q1

REPORT INFORMATION
  Report Type: Report from Study
  Country: US (occurrence: US)
  Receive Date: 20200109
  Receipt Date: 20200109
  Transmission Date: 20200409
  Serious: Yes (Hospitalization)
  Sender: FDA-Public Use
  Company Number: US-BRISTOL-MYERS SQUIBB COMPANY-BMS-2020-001246

PATIENT
  Age: 62 Year
  Sex: Female
  Weight: 86.1 kg

DRUGS (1)
  1. ABATACEPT [Suspect]
     Active Substance: ABATACEPT
     Indication: RHEUMATOID ARTHRITIS
     Dosage: 125 MILLIGRAM, QWK
     Route: 058
     Dates: start: 201908

REACTIONS (8)
  - Fall [Unknown]
  - Pain [Unknown]
  - Influenza like illness [Unknown]
  - Feeding disorder [Unknown]
  - Upper limb fracture [Unknown]
  - Pain in extremity [Unknown]
  - Blister [Unknown]
  - Feeling abnormal [Unknown]

NARRATIVE: CASE EVENT DATE: 201910
